FAERS Safety Report 7433637-6 (Version None)
Quarter: 2011Q2

REPORT INFORMATION
  Report Type: 
  Country: None (occurrence: None)
  Receive Date: 20110422
  Receipt Date: 20110412
  Transmission Date: 20111010
  Serious: Yes (Hospitalization, Disabling, Other)
  Sender: FDA-Public Use
  Company Number: US-MERCK-1009USA04498

PATIENT
  Age: 49 Year
  Sex: Female

DRUGS (9)
  1. ALENDRONATE SODIUM [Suspect]
     Indication: OSTEOPENIA
     Route: 048
     Dates: start: 20090316, end: 20090526
  2. ALENDRONATE SODIUM [Suspect]
     Indication: OSTEOPOROSIS
     Route: 048
     Dates: start: 20090316, end: 20090526
  3. SYNTHROID [Concomitant]
     Indication: THYROID DISORDER
     Route: 065
     Dates: start: 19800101
  4. EASPRIN [Concomitant]
     Indication: RHEUMATOID ARTHRITIS
     Route: 065
     Dates: start: 19870101, end: 20080101
  5. CALCIUM (UNSPECIFIED) [Concomitant]
     Route: 065
  6. FOSAMAX [Suspect]
     Indication: OSTEOPENIA
     Route: 048
     Dates: start: 19971219, end: 20090709
  7. FOSAMAX [Suspect]
     Indication: OSTEOPOROSIS
     Route: 048
     Dates: start: 19971219, end: 20090709
  8. METHOTREXATE [Concomitant]
     Indication: RHEUMATOID ARTHRITIS
     Route: 065
     Dates: start: 19950101
  9. ENBREL [Concomitant]
     Indication: RHEUMATOID ARTHRITIS
     Route: 065
     Dates: start: 20000101

REACTIONS (43)
  - ADVERSE DRUG REACTION [None]
  - HIATUS HERNIA [None]
  - GINGIVITIS [None]
  - VITAMIN B12 DEFICIENCY [None]
  - DYSLIPIDAEMIA [None]
  - MALIGNANT MELANOMA STAGE II [None]
  - GASTRIC DISORDER [None]
  - TONGUE DISCOLOURATION [None]
  - SUBMAXILLARY GLAND ENLARGEMENT [None]
  - OSTEOARTHRITIS [None]
  - MELANOCYTIC NAEVUS [None]
  - INTERVERTEBRAL DISC DEGENERATION [None]
  - FEMUR FRACTURE [None]
  - MACROCYTOSIS [None]
  - FALL [None]
  - ADENOMA BENIGN [None]
  - BONE DISORDER [None]
  - MEAN CELL VOLUME INCREASED [None]
  - DENTAL CARIES [None]
  - DERMATITIS CONTACT [None]
  - BRONCHITIS [None]
  - SEBORRHOEIC KERATOSIS [None]
  - POLYP COLORECTAL [None]
  - COLONIC POLYP [None]
  - GASTROOESOPHAGEAL REFLUX DISEASE [None]
  - FOOT FRACTURE [None]
  - DIVERTICULUM [None]
  - RHEUMATOID ARTHRITIS [None]
  - TONSILLAR DISORDER [None]
  - SPONDYLOLISTHESIS [None]
  - BLOOD CHOLESTEROL INCREASED [None]
  - FOLATE DEFICIENCY [None]
  - SPINAL COLUMN STENOSIS [None]
  - SINUSITIS [None]
  - DUODENITIS [None]
  - OSTEONECROSIS OF JAW [None]
  - STRESS FRACTURE [None]
  - BACK PAIN [None]
  - HYPERLIPIDAEMIA [None]
  - GASTRITIS [None]
  - DRUG HYPERSENSITIVITY [None]
  - OEDEMA PERIPHERAL [None]
  - ARTHROPATHY [None]
